FAERS Safety Report 15537710 (Version 1)
Quarter: 2018Q4

REPORT INFORMATION
  Report Type: Spontaneous
  Country: EE (occurrence: EE)
  Receive Date: 20181022
  Receipt Date: 20181022
  Transmission Date: 20190205
  Serious: Yes (Death, Life-Threatening, Hospitalization)
  Sender: FDA-Public Use
  Company Number: EE-PFIZER INC-2018425492

PATIENT
  Age: 67 Year
  Sex: Female

DRUGS (5)
  1. MEDROL [Suspect]
     Active Substance: METHYLPREDNISOLONE
     Indication: RHEUMATOID ARTHRITIS
     Dosage: 4 MG 1X/DAY
     Route: 048
     Dates: start: 19850101
  2. SIMPONI [Suspect]
     Active Substance: GOLIMUMAB
     Indication: RHEUMATOID ARTHRITIS
     Dosage: 20 MG MONTHLY
     Route: 058
     Dates: start: 20131120, end: 20170808
  3. PLAQUENIL [Concomitant]
     Active Substance: HYDROXYCHLOROQUINE SULFATE
     Indication: RHEUMATOID ARTHRITIS
     Dosage: 200 MG 1X/DAY
     Route: 048
     Dates: end: 20171103
  4. ARCOXIA [Concomitant]
     Active Substance: ETORICOXIB
     Indication: PAIN
     Dosage: 90 MG, AS NEEDED
     Route: 048
  5. ARAVA [Suspect]
     Active Substance: LEFLUNOMIDE
     Indication: RHEUMATOID ARTHRITIS
     Dosage: 10 MG 1X/DAY
     Route: 048
     Dates: end: 20171103

REACTIONS (2)
  - Diverticular perforation [Fatal]
  - Abdominal abscess [Fatal]

NARRATIVE: CASE EVENT DATE: 20171102
